FAERS Safety Report 9383875 (Version 1)
Quarter: 2013Q3

REPORT INFORMATION
  Report Type: Spontaneous
  Country: US (occurrence: US)
  Receive Date: 20130704
  Receipt Date: 20130704
  Transmission Date: 20140515
  Serious: No
  Sender: FDA-Public Use
  Company Number: US-B.I. PHARMACEUTICALS,INC./RIDGEFIELD-2013-BI-18911BP

PATIENT
  Sex: Male

DRUGS (5)
  1. ZANTAC 150 (RANITIDINE HYDROCHLORIDE) [Suspect]
  2. AMLODIPINE BESYLATE [Concomitant]
  3. ALLEGRA [Concomitant]
  4. BENICAR [Concomitant]
  5. AMOXICILLIN [Concomitant]

REACTIONS (3)
  - Palpitations [Unknown]
  - Feeling abnormal [Unknown]
  - Drug interaction [Unknown]
